FAERS Safety Report 10633267 (Version 1)
Quarter: 2014Q4

REPORT INFORMATION
  Report Type: Spontaneous
  Country: US (occurrence: US)
  Receive Date: 20141205
  Receipt Date: 20141205
  Transmission Date: 20150529
  Serious: No
  Sender: FDA-Public Use
  Company Number: US-BRISTOL-MYERS SQUIBB COMPANY-21516943

PATIENT
  Sex: Female

DRUGS (1)
  1. ELIQUIS [Suspect]
     Active Substance: APIXABAN
     Dates: start: 20141017

REACTIONS (6)
  - Asthenia [Unknown]
  - Insomnia [Unknown]
  - Dizziness [Unknown]
  - Pain [Unknown]
  - Abdominal discomfort [Unknown]
  - Hyperhidrosis [Unknown]
